FAERS Safety Report 19402677 (Version 2)
Quarter: 2021Q2

REPORT INFORMATION
  Report Type: Spontaneous
  Country: CA (occurrence: CA)
  Receive Date: 20210611
  Receipt Date: 20210611
  Transmission Date: 20210717
  Serious: Yes (Hospitalization)
  Sender: FDA-Public Use
  Company Number: CA-ADIENNEP-2021AD000365

PATIENT
  Age: 3 Year
  Sex: Male
  Weight: 15 kg

DRUGS (45)
  1. HYDROMORPHONE [Concomitant]
     Active Substance: HYDROMORPHONE
  2. SPIRONOLACTONE. [Concomitant]
     Active Substance: SPIRONOLACTONE
     Dosage: ()
  3. TRIMETHOPRIM?SULFAMETHOXAZOLE [Concomitant]
     Active Substance: SULFAMETHOXAZOLE\TRIMETHOPRIM
  4. VANCOMYCIN [Concomitant]
     Active Substance: VANCOMYCIN
  5. ACYCLOVIR. [Concomitant]
     Active Substance: ACYCLOVIR
  6. CALCIUM/VITAMIN D3 [Concomitant]
     Active Substance: CALCIUM\CHOLECALCIFEROL
  7. CARBOPLATIN. [Suspect]
     Active Substance: CARBOPLATIN
     Indication: TRANSPLANT
     Dosage: 170.0 MILLIGRAM
     Route: 042
  8. ENOXAPARIN [Concomitant]
     Active Substance: ENOXAPARIN
     Dosage: ()
  9. FAMOTIDINE. [Concomitant]
     Active Substance: FAMOTIDINE
     Dosage: ()
  10. KETAMINE (UNKNOWN) [Concomitant]
     Active Substance: KETAMINE
  11. MIDAZOLAM (UNKNOWN) [Concomitant]
     Active Substance: MIDAZOLAM HYDROCHLORIDE
  12. CARDENE [Concomitant]
     Active Substance: NICARDIPINE HYDROCHLORIDE
  13. DEXMEDETOMIDINE. [Concomitant]
     Active Substance: DEXMEDETOMIDINE
  14. HYDROCORTISONE. [Concomitant]
     Active Substance: HYDROCORTISONE
     Dosage: ()
  15. MELATONIN [Concomitant]
     Active Substance: MELATONIN
  16. MYCAMINE [Concomitant]
     Active Substance: MICAFUNGIN SODIUM
     Dosage: ()
  17. POTASSIUM [Concomitant]
     Active Substance: POTASSIUM
     Dosage: ()
  18. CEFTAZIDIME. [Concomitant]
     Active Substance: CEFTAZIDIME
     Dosage: ()
  19. METOCLOPRAMIDE. [Concomitant]
     Active Substance: METOCLOPRAMIDE
  20. ATROPINE. [Concomitant]
     Active Substance: ATROPINE
  21. CETIRIZINE [Concomitant]
     Active Substance: CETIRIZINE HYDROCHLORIDE
     Dosage: ()
  22. CHOLECALCIFEROL [Concomitant]
     Active Substance: CHOLECALCIFEROL
  23. DOBUTAMINE [Concomitant]
     Active Substance: DOBUTAMINE HYDROCHLORIDE
     Dosage: ()
  24. NOREPINEPHRINE. [Concomitant]
     Active Substance: NOREPINEPHRINE
     Dosage: ()
  25. PANTOPRAZOLE [Concomitant]
     Active Substance: PANTOPRAZOLE
     Dosage: ()
  26. PIPERACILLIN/TAZOBACTAM [Concomitant]
     Active Substance: PIPERACILLIN SODIUM\TAZOBACTAM SODIUM
  27. PRAZOSIN. [Concomitant]
     Active Substance: PRAZOSIN
     Dosage: ()
  28. RANITIDINE. [Concomitant]
     Active Substance: RANITIDINE
     Dosage: ()
  29. SOLIRIS [Concomitant]
     Active Substance: ECULIZUMAB
     Dosage: ()
  30. THIOTEPA. [Suspect]
     Active Substance: THIOTEPA
     Indication: TRANSPLANT
     Dosage: 190.0 MILLIGRAM
     Route: 042
  31. METOLAZONE. [Concomitant]
     Active Substance: METOLAZONE
  32. NABILONE [Concomitant]
     Active Substance: NABILONE
  33. PENTAMIDINE ISETHIONATE INJ 300MG/VIAL BP [Concomitant]
  34. AMLODIPINE [Concomitant]
     Active Substance: AMLODIPINE BESYLATE
     Dosage: ()
  35. AMOXICILLIN. [Concomitant]
     Active Substance: AMOXICILLIN
  36. CLONIDINE. [Concomitant]
     Active Substance: CLONIDINE
     Dosage: ()
  37. DIMENHYDRINATE. [Concomitant]
     Active Substance: DIMENHYDRINATE
     Dosage: ()
  38. DIPHENHYDRAMINE. [Concomitant]
     Active Substance: DIPHENHYDRAMINE
  39. FLUCONAZOLE. [Concomitant]
     Active Substance: FLUCONAZOLE
     Dosage: ()
  40. FUROSEMIDE. [Concomitant]
     Active Substance: FUROSEMIDE
     Dosage: ()
  41. LANSOPRAZOLE. [Concomitant]
     Active Substance: LANSOPRAZOLE
     Dosage: ()
  42. LEVETIRACETAM. [Concomitant]
     Active Substance: LEVETIRACETAM
     Dosage: ()
     Route: 065
  43. OLANZAPINE. [Concomitant]
     Active Substance: OLANZAPINE
  44. FILGRASTIM [Concomitant]
     Active Substance: FILGRASTIM
  45. LORAZEPAM. [Concomitant]
     Active Substance: LORAZEPAM

REACTIONS (10)
  - Intensive care [Unknown]
  - Diarrhoea [Unknown]
  - Nausea [Unknown]
  - Acute respiratory failure [Unknown]
  - Cholestasis [Unknown]
  - Hepatic enzyme increased [Unknown]
  - Pneumonitis [Unknown]
  - Respiratory distress [Unknown]
  - Venoocclusive liver disease [Unknown]
  - Vomiting [Unknown]
